FAERS Safety Report 10166194 (Version 1)
Quarter: 2014Q2

REPORT INFORMATION
  Report Type: Spontaneous
  Country: US (occurrence: US)
  Receive Date: 20140512
  Receipt Date: 20140512
  Transmission Date: 20141212
  Serious: Yes (Other)
  Sender: FDA-Public Use
  Company Number: US-BIOGENIDEC-2014BI041542

PATIENT
  Age: 46 Year
  Sex: Female

DRUGS (5)
  1. AVONEX [Suspect]
     Indication: MULTIPLE SCLEROSIS
     Route: 030
  2. AVONEX [Suspect]
     Indication: MULTIPLE SCLEROSIS
     Route: 030
     Dates: start: 1996
  3. AVONEX [Suspect]
     Indication: MULTIPLE SCLEROSIS
     Route: 030
     Dates: start: 20110901
  4. AMPYRA [Concomitant]
     Indication: GAIT DISTURBANCE
     Dates: start: 2011, end: 2013
  5. GILENYA [Concomitant]
     Dates: start: 2011, end: 2013

REACTIONS (2)
  - Cardiac failure congestive [Not Recovered/Not Resolved]
  - Diabetes mellitus [Not Recovered/Not Resolved]
